FAERS Safety Report 4687452-7 (Version None)
Quarter: 2005Q2

REPORT INFORMATION
  Report Type: 
  Country: None (occurrence: None)
  Receive Date: 20050609
  Receipt Date: 20050609
  Transmission Date: 20051028
  Serious: No
  Sender: FDA-Public Use
  Company Number: None

PATIENT
  Sex: Female
  Weight: 55.7924 kg

DRUGS (6)
  1. CETUXIMAB [Suspect]
     Indication: COLON CANCER METASTATIC
     Dosage: 380 MG    Q WEEK X 4 WKS   INTRAVENOU
     Route: 042
     Dates: start: 20050523, end: 20050523
  2. DEXAMETHASONE [Concomitant]
  3. DIPHENHYDRAMINE HCL [Concomitant]
  4. GRANISETRON [Concomitant]
  5. LORAZEPAM [Concomitant]
  6. IRONOTECAN [Concomitant]

REACTIONS (4)
  - FLUSHING [None]
  - HYPOTENSION [None]
  - INFUSION RELATED REACTION [None]
  - TACHYCARDIA [None]
